FAERS Safety Report 4652981-9 (Version None)
Quarter: 2005Q2

REPORT INFORMATION
  Report Type: 
  Country: None (occurrence: None)
  Receive Date: 20050503
  Receipt Date: 20050419
  Transmission Date: 20051028
  Serious: Yes (Other)
  Sender: FDA-Public Use
  Company Number: 2005-04-1395

PATIENT
  Age: 74 Year
  Sex: Female

DRUGS (2)
  1. CLARITIN-D [Suspect]
     Indication: SINUS CONGESTION
     Dosage: ONCE ORAL
     Route: 048
     Dates: start: 20050415, end: 20050415
  2. VIT C TAB [Concomitant]

REACTIONS (6)
  - BURNING SENSATION [None]
  - DISORIENTATION [None]
  - HALLUCINATION [None]
  - INSOMNIA [None]
  - PRURITUS [None]
  - RASH ERYTHEMATOUS [None]
